FAERS Safety Report 5464443-X (Version None)
Quarter: 2007Q3

REPORT INFORMATION
  Report Type: 
  Country: None (occurrence: None)
  Receive Date: 20070921
  Receipt Date: 20070910
  Transmission Date: 20080115
  Serious: Yes (Hospitalization)
  Sender: FDA-Public Use
  Company Number: IT-ELI_LILLY_AND_COMPANY-IT200709000131

PATIENT
  Age: 67 Year
  Sex: Female

DRUGS (7)
  1. CELECOXIB [Concomitant]
     Dosage: 1 D/F, DAILY (1/D)
     Route: 048
  2. MODURETIC 5-50 [Concomitant]
     Dosage: 0.5 D/F, DAILY (1/D)
     Route: 048
  3. LOSARTAN POSTASSIUM [Concomitant]
     Dosage: 1 D/F, DAILY (1/D)
     Route: 048
  4. ASPIRIN [Concomitant]
     Dosage: 1 D/F, DAILY (1/D)
     Route: 048
  5. CHLORDESMETHYLDIAZEPAM [Concomitant]
     Dosage: 10 GTT, AS NEEDED
     Route: 048
  6. CYMBALTA [Suspect]
     Indication: DEPRESSION
     Dosage: 60 MG, DAILY (1/D)
     Route: 048
     Dates: start: 20070401, end: 20070415
  7. CYMBALTA [Suspect]
     Dosage: 60 MG, DAILY (1/D)
     Route: 048
     Dates: start: 20070315, end: 20070401

REACTIONS (2)
  - DERMATITIS ALLERGIC [None]
  - SKIN LESION [None]
